FAERS Safety Report 7385473-7 (Version None)
Quarter: 2011Q1

REPORT INFORMATION
  Report Type: 
  Country: None (occurrence: None)
  Receive Date: 20110330
  Receipt Date: 20110124
  Transmission Date: 20110831
  Serious: Yes (Other)
  Sender: FDA-Public Use
  Company Number: US-AMGEN-USASP2011004523

PATIENT
  Age: 54 Year
  Sex: Male

DRUGS (2)
  1. NPLATE [Suspect]
     Indication: IDIOPATHIC THROMBOCYTOPENIC PURPURA
     Dosage: 283 A?G, UNK
     Dates: start: 20100120, end: 20100326
  2. CORTICOSTEROIDS [Concomitant]

REACTIONS (1)
  - DRUG INEFFECTIVE [None]
